FAERS Safety Report 10089065 (Version 1)
Quarter: 2014Q2

REPORT INFORMATION
  Report Type: Spontaneous
  Country: US (occurrence: None)
  Receive Date: 20140418
  Receipt Date: 20140418
  Transmission Date: 20141212
  Serious: Yes (Hospitalization)
  Sender: FDA-Public Use
  Company Number: None

PATIENT
  Age: 29 Year
  Sex: Female
  Weight: 54.43 kg

DRUGS (1)
  1. ZITHROMAX [Suspect]
     Indication: BACTERIAL INFECTION
     Dosage: 1 GM PAC 4 ONE SHOTE BY MOUTH
     Route: 048
     Dates: start: 20140417, end: 20140417

REACTIONS (8)
  - Dyspnoea [None]
  - Vision blurred [None]
  - Heart rate increased [None]
  - Amnesia [None]
  - Delirium [None]
  - Hyperhidrosis [None]
  - Somnolence [None]
  - Fall [None]
